FAERS Safety Report 19429459 (Version 1)
Quarter: 2021Q2

REPORT INFORMATION
  Report Type: Spontaneous
  Country: HR (occurrence: HR)
  Receive Date: 20210617
  Receipt Date: 20210617
  Transmission Date: 20210717
  Serious: Yes (Other)
  Sender: FDA-Public Use
  Company Number: HR-ACCORD-228165

PATIENT
  Age: 46 Year
  Sex: Female

DRUGS (2)
  1. QUETIAPINE. [Suspect]
     Active Substance: QUETIAPINE
     Indication: PRODUCT USED FOR UNKNOWN INDICATION
     Route: 048
     Dates: start: 20210326, end: 20210326
  2. DIAZEPAM. [Suspect]
     Active Substance: DIAZEPAM
     Indication: PRODUCT USED FOR UNKNOWN INDICATION
     Route: 048
     Dates: start: 20210326, end: 20210326

REACTIONS (4)
  - Somnolence [Unknown]
  - Altered state of consciousness [Unknown]
  - Unresponsive to stimuli [Unknown]
  - Suicide attempt [Unknown]

NARRATIVE: CASE EVENT DATE: 20210326
